FAERS Safety Report 8837951 (Version 3)
Quarter: 2015Q3

REPORT INFORMATION
  Report Type: Report from Study
  Country: US (occurrence: US)
  Receive Date: 20121012
  Receipt Date: 20150812
  Transmission Date: 20151125
  Serious: Yes (Other)
  Sender: FDA-Public Use
  Company Number: US-ROCHE-1113582

PATIENT
  Sex: Male
  Weight: 97.72 kg

DRUGS (2)
  1. NUTROPIN AQ [Suspect]
     Active Substance: SOMATROPIN
     Indication: HYPOPITUITARISM
  2. NUTROPIN AQ [Suspect]
     Active Substance: SOMATROPIN
     Indication: GROWTH HORMONE DEFICIENCY
     Dosage: INJECTION VOLUME: 0.118 ML
     Route: 058

REACTIONS (5)
  - Nausea [Unknown]
  - Headache [Unknown]
  - Hydrocephalus [Recovered/Resolved]
  - Infection [Unknown]
  - Dizziness [Unknown]
